FAERS Safety Report 13530972 (Version 1)
Quarter: 2017Q2

REPORT INFORMATION
  Report Type: Spontaneous
  Country: TR (occurrence: TR)
  Receive Date: 20170510
  Receipt Date: 20170510
  Transmission Date: 20170830
  Serious: Yes (Death, Hospitalization, Other)
  Sender: FDA-Public Use
  Company Number: TR-APOTEX-2017AP011392

PATIENT
  Age: 76 Year
  Sex: Female
  Weight: 80 kg

DRUGS (3)
  1. INSULIN [Concomitant]
     Active Substance: INSULIN NOS
     Indication: PRODUCT USED FOR UNKNOWN INDICATION
     Route: 065
  2. AS-AMLO [Suspect]
     Active Substance: AMLODIPINE BESYLATE
     Indication: SUICIDE ATTEMPT
     Dosage: 140 MG, TOTAL
     Route: 048
  3. ASPIRIN                            /00002701/ [Concomitant]
     Active Substance: ASPIRIN
     Indication: PRODUCT USED FOR UNKNOWN INDICATION
     Route: 065

REACTIONS (14)
  - Suicide attempt [Unknown]
  - Coma scale abnormal [Unknown]
  - Overdose [Unknown]
  - Loss of consciousness [Unknown]
  - Hypotension [Unknown]
  - Metabolic acidosis [Fatal]
  - Myocardial ischaemia [Fatal]
  - Sinus bradycardia [Unknown]
  - Confusional state [Unknown]
  - Lactic acidosis [Fatal]
  - Bradycardia [Fatal]
  - Cardiac arrest [Fatal]
  - Toxicity to various agents [Unknown]
  - Condition aggravated [Unknown]
